FAERS Safety Report 5747313-9 (Version None)
Quarter: 2008Q2

REPORT INFORMATION
  Report Type: 
  Country: None (occurrence: None)
  Receive Date: 20080523
  Receipt Date: 20080514
  Transmission Date: 20081010
  Serious: Yes (Hospitalization)
  Sender: FDA-Public Use
  Company Number: US-JNJFOC-20080200397

PATIENT
  Sex: Male
  Weight: 81.65 kg

DRUGS (6)
  1. DURAGESIC-100 [Suspect]
     Dosage: 1 X 100 UG/HR AND 1 X 75 UG/HR
     Route: 062
  2. DURAGESIC-100 [Suspect]
     Route: 062
  3. DURAGESIC-100 [Suspect]
     Dosage: 1 X 100 UG/HR AND 1 X 50 UG/HR
     Route: 062
  4. DURAGESIC-100 [Suspect]
     Indication: PAIN
     Dosage: TWO 75 UG/HR PATCHES
     Route: 062
  5. FENTANYL TRANSDERMAL SYSTEM [Suspect]
     Indication: PAIN
     Route: 062
  6. ROXYCODONE [Concomitant]
     Indication: BREAKTHROUGH PAIN
     Route: 048

REACTIONS (6)
  - APPLICATION SITE EXCORIATION [None]
  - INCORRECT DRUG ADMINISTRATION DURATION [None]
  - PHARMACEUTICAL PRODUCT COMPLAINT [None]
  - SPINAL FUSION SURGERY [None]
  - THERAPEUTIC RESPONSE DECREASED [None]
  - WRONG TECHNIQUE IN DRUG USAGE PROCESS [None]
